FAERS Safety Report 7916848-2 (Version None)
Quarter: 2011Q4

REPORT INFORMATION
  Report Type: 
  Country: None (occurrence: None)
  Receive Date: 20111116
  Receipt Date: 20111104
  Transmission Date: 20120403
  Serious: Yes (Hospitalization, Other)
  Sender: FDA-Public Use
  Company Number: FR-BRISTOL-MYERS SQUIBB COMPANY-16231094

PATIENT
  Age: 35 Year
  Sex: Female

DRUGS (3)
  1. FLUDROCORTISONE ACETATE [Concomitant]
     Route: 048
  2. HYDROCORTISONE [Concomitant]
     Dosage: 20-40MG
     Route: 048
  3. LYSODREN [Suspect]
     Indication: ADRENOCORTICAL CARCINOMA
     Dosage: INITIALLY START WITH 1G
     Dates: start: 20110301, end: 20111009

REACTIONS (5)
  - PANCYTOPENIA [None]
  - WEIGHT DECREASED [None]
  - IMPAIRED GASTRIC EMPTYING [None]
  - DISTURBANCE IN ATTENTION [None]
  - DYSPEPSIA [None]
